FAERS Safety Report 21598261 (Version 1)
Quarter: 2022Q4

REPORT INFORMATION
  Report Type: Spontaneous
  Country: US (occurrence: US)
  Receive Date: 20221115
  Receipt Date: 20221115
  Transmission Date: 20230113
  Serious: No
  Sender: FDA-Public Use
  Company Number: US-TARO PHARMACEUTICALS USA INC.-2022TAR01112

PATIENT

DRUGS (1)
  1. MUPIROCIN [Suspect]
     Active Substance: MUPIROCIN
     Indication: Pigmentation disorder
     Dosage: UNK, DAILY, APPLY SMALL AMOUNT
     Route: 061
     Dates: start: 20220818

REACTIONS (5)
  - Limb discomfort [Recovering/Resolving]
  - Blister [Recovering/Resolving]
  - Scab [Recovering/Resolving]
  - Rash [Recovering/Resolving]
  - Product use in unapproved indication [Unknown]
